FAERS Safety Report 9226350 (Version 4)
Quarter: 2013Q2

REPORT INFORMATION
  Report Type: Report from Study
  Country: DE (occurrence: DE)
  Receive Date: 20130411
  Receipt Date: 20130529
  Transmission Date: 20140414
  Serious: Yes (Other)
  Sender: FDA-Public Use
  Company Number: DE-SANOFI-AVENTIS-2013SA037473

PATIENT
  Age: 63 Year
  Sex: Male
  Weight: 83 kg

DRUGS (11)
  1. MULTAQ [Suspect]
     Indication: ATRIAL FIBRILLATION
     Route: 048
     Dates: start: 20130104, end: 20130410
  2. MULTAQ [Suspect]
     Indication: ATRIAL FIBRILLATION
     Route: 048
     Dates: start: 20120605, end: 20121004
  3. OXALIPLATIN [Suspect]
     Indication: RECTAL CANCER
     Route: 065
     Dates: start: 20120513, end: 20120628
  4. FLUOROURACIL [Suspect]
     Indication: RECTAL CANCER
     Dates: start: 20120513, end: 20120628
  5. FOLINIC ACID [Suspect]
     Indication: RECTAL CANCER
     Dosage: 400MG/M2 AND 600MG/M2
     Dates: start: 20120513, end: 20120628
  6. METOPROLOL SUCCINATE [Concomitant]
     Dosage: 1/4 TAB
     Route: 048
     Dates: start: 2012
  7. XARELTO [Concomitant]
     Indication: ANTICOAGULANT THERAPY
     Route: 048
     Dates: start: 20130410
  8. LEVOFLOXACIN [Concomitant]
     Route: 048
     Dates: start: 201301
  9. ACETYLSALICYLIC ACID [Concomitant]
     Dates: start: 201301, end: 201304
  10. PANTOZOL [Concomitant]
  11. DIGITALIS GLYCOSIDES [Concomitant]
     Dates: start: 201202, end: 201203

REACTIONS (3)
  - Alveolitis [Unknown]
  - Interstitial lung disease [Unknown]
  - Toxicity to various agents [Unknown]
